FAERS Safety Report 19278341 (Version 11)
Quarter: 2025Q3

REPORT INFORMATION
  Report Type: Report from Study
  Country: US (occurrence: US)
  Receive Date: 20210520
  Receipt Date: 20250821
  Transmission Date: 20251020
  Serious: Yes (Hospitalization, Other)
  Sender: TAKEDA
  Company Number: US-TAKEDA-US202030658

PATIENT
  Age: 57 Year
  Sex: Female

DRUGS (2)
  1. HUMAN IMMUNOGLOBULIN G [Suspect]
     Active Substance: HUMAN IMMUNOGLOBULIN G
     Indication: Hypogammaglobulinaemia
  2. HUMAN IMMUNOGLOBULIN G [Suspect]
     Active Substance: HUMAN IMMUNOGLOBULIN G
     Indication: Primary immunodeficiency syndrome

REACTIONS (24)
  - Intestinal obstruction [Recovering/Resolving]
  - Colitis ulcerative [Unknown]
  - Abdominal infection [Unknown]
  - Abscess [Unknown]
  - Autoimmune disorder [Unknown]
  - Gastrointestinal anastomotic leak [Unknown]
  - Large intestine perforation [Unknown]
  - Anaemia [Unknown]
  - Foot fracture [Unknown]
  - Arthritis [Unknown]
  - Infusion site rash [Unknown]
  - Fall [Unknown]
  - Multiple allergies [Unknown]
  - Tendonitis [Unknown]
  - Procedural pain [Unknown]
  - COVID-19 [Unknown]
  - Poor venous access [Unknown]
  - Inappropriate schedule of product administration [Unknown]
  - Insurance issue [Unknown]
  - Infusion site erythema [Unknown]
  - Infusion site pruritus [Unknown]
  - Infusion site swelling [Unknown]
  - Pain in extremity [Unknown]
  - Fatigue [Unknown]

NARRATIVE: CASE EVENT DATE: 20241204
